FAERS Safety Report 8716209 (Version 4)
Quarter: 2013Q1

REPORT INFORMATION
  Report Type: Report from Study
  Country: JP (occurrence: JP)
  Receive Date: 20120809
  Receipt Date: 20130114
  Transmission Date: 20140127
  Serious: Yes (Hospitalization)
  Sender: FDA-Public Use
  Company Number: JP-009507513-1208JPN001978

PATIENT
  Age: 56 Year
  Sex: Male
  Weight: 82 kg

DRUGS (24)
  1. ACETAMINOPHEN [Concomitant]
     Indication: PROPHYLAXIS
     Dosage: 1.5 G, QD
     Route: 048
     Dates: start: 20120404, end: 20120424
  2. GLACTIV [Concomitant]
     Indication: DIABETES MELLITUS
     Dosage: 50 MG, QD
     Route: 048
     Dates: start: 20120502
  3. TALION (BEPOTASTINE BESYLATE) [Concomitant]
     Dosage: 20 MG, QD
     Route: 048
  4. FLUCORT (FLUOCINOLONE ACETONIDE) [Concomitant]
     Dosage: 5 MG/DAY, PRN
     Route: 061
     Dates: start: 20120822
  5. KERATINAMIN [Concomitant]
     Dosage: 25 G/DAY AS NEEDED
     Route: 061
     Dates: start: 20120829
  6. PEGINTRON [Suspect]
     Indication: CHRONIC HEPATITIS C
     Dosage: 1.5 MICROGRAM PER KILOGRAM, QW
     Route: 058
     Dates: start: 20120314, end: 20120822
  7. REBETOL [Suspect]
     Indication: CHRONIC HEPATITIS C
     Dosage: 1000 MG, QD
     Route: 048
     Dates: start: 20120314, end: 20120327
  8. REBETOL [Suspect]
     Dosage: 600 MG, QD
     Route: 048
     Dates: start: 20120328, end: 20120509
  9. REBETOL [Suspect]
     Dosage: 800 MG, QD
     Route: 048
     Dates: start: 20120510, end: 20120515
  10. REBETOL [Suspect]
     Dosage: 1000 MG, QD
     Route: 048
     Dates: start: 20120516, end: 20120828
  11. TELAVIC [Suspect]
     Indication: CHRONIC HEPATITIS C
     Dosage: 2250 MG, QD
     Route: 048
     Dates: start: 20120314, end: 20120427
  12. PREDNISOLONE [Suspect]
     Indication: ADVERSE EVENT
     Dosage: 40 MG, QD
     Route: 048
     Dates: start: 20120428, end: 20120504
  13. PREDNISOLONE [Suspect]
     Dosage: 30 MG, QD
     Route: 048
     Dates: start: 20120505, end: 20120509
  14. PREDNISOLONE [Suspect]
     Dosage: 20 MG, QD
     Route: 048
     Dates: start: 20120510, end: 20120515
  15. PREDNISOLONE [Suspect]
     Dosage: 10 MG, QD
     Route: 048
     Dates: start: 20120516, end: 20120522
  16. PREDNISOLONE [Suspect]
     Dosage: 5 MG, QD
     Route: 048
     Dates: start: 20120523, end: 20120529
  17. CELECOX [Suspect]
     Indication: PROPHYLAXIS
     Dosage: 200 MG, QD
     Route: 048
     Dates: start: 20120425, end: 20120427
  18. CELECOX [Suspect]
     Dosage: 200 MG, QD
     Route: 048
     Dates: start: 20120808, end: 20120810
  19. MAGMITT [Concomitant]
     Indication: CONSTIPATION
     Dosage: 1980 MG, QD
     Route: 048
     Dates: end: 20120417
  20. BAYASPIRIN [Concomitant]
     Indication: MYOCARDIAL INFARCTION
     Dosage: 100 MG, QD
     Route: 048
  21. BAYASPIRIN [Concomitant]
     Indication: MYOCARDIAL INFARCTION
  22. BLOPRESS [Concomitant]
     Indication: HYPERTENSION
     Dosage: 4 MG, QD
     Route: 048
  23. LOXONIN [Concomitant]
     Indication: PROPHYLAXIS
     Dosage: 180 MG, QD
     Route: 048
     Dates: start: 20120314, end: 20120330
  24. LOXONIN [Concomitant]
     Dosage: 120 MG, QD
     Route: 048
     Dates: start: 20120815

REACTIONS (1)
  - Erythema [Recovered/Resolved]
